FAERS Safety Report 7354417-6 (Version None)
Quarter: 2011Q1

REPORT INFORMATION
  Report Type: 
  Country: None (occurrence: None)
  Receive Date: 20110316
  Receipt Date: 20110304
  Transmission Date: 20110831
  Serious: Yes (Hospitalization)
  Sender: FDA-Public Use
  Company Number: PHHO2010US19048

PATIENT
  Sex: Male

DRUGS (16)
  1. NORVASC [Concomitant]
  2. ASPIRIN [Concomitant]
  3. PRAVACHOL [Concomitant]
  4. MAGNESIUM OXIDE [Concomitant]
  5. IMDUR [Concomitant]
  6. PREDNISONE [Concomitant]
     Indication: RENAL TRANSPLANT
     Dosage: 5 MG / DAY
     Route: 048
     Dates: start: 20060413
  7. HYTRIN [Concomitant]
  8. NOVOLOG [Concomitant]
  9. AMLODIPINE [Concomitant]
  10. CYCLOSPORINE [Concomitant]
  11. TOPROL-XL [Concomitant]
  12. MULTI-VITAMIN [Concomitant]
  13. INSULIN [Concomitant]
  14. ZORTRESS [Suspect]
     Indication: RENAL TRANSPLANT
     Dosage: 0.5 MG, BID
     Route: 048
  15. BACTRIM [Concomitant]
  16. SODIUM BICARBONATE [Concomitant]

REACTIONS (7)
  - DIEULAFOY'S VASCULAR MALFORMATION [None]
  - GASTROINTESTINAL HAEMORRHAGE [None]
  - FAECES DISCOLOURED [None]
  - DIZZINESS [None]
  - FATIGUE [None]
  - ANAEMIA [None]
  - MELAENA [None]
